FAERS Safety Report 23383907 (Version 1)
Quarter: 2024Q1

REPORT INFORMATION
  Report Type: Spontaneous
  Country: KR (occurrence: KR)
  Receive Date: 20240109
  Receipt Date: 20240109
  Transmission Date: 20240410
  Serious: Yes (Hospitalization, Other)
  Sender: FDA-Public Use
  Company Number: KR-BAXTER-2024BAX009900

PATIENT
  Age: 48 Year
  Sex: Female

DRUGS (3)
  1. CYCLOPHOSPHAMIDE [Suspect]
     Active Substance: CYCLOPHOSPHAMIDE
     Indication: Breast cancer female
     Dosage: CHEMOTHERAPY, FOR FIVE MONTHS
     Route: 065
  2. DOXORUBICIN [Suspect]
     Active Substance: DOXORUBICIN
     Indication: Breast cancer female
     Dosage: CHEMOTHERAPY, FOR FIVE MONTHS
     Route: 065
  3. PACLITAXEL [Suspect]
     Active Substance: PACLITAXEL
     Indication: Breast cancer female
     Dosage: CHEMOTHERAPY, FOR FIVE MONTHS
     Route: 065

REACTIONS (5)
  - Cutaneous B-cell lymphoma [Unknown]
  - Marginal zone lymphoma [Unknown]
  - Skin lesion [Not Recovered/Not Resolved]
  - Purpura [Unknown]
  - Nodule [Unknown]
